FAERS Safety Report 11087942 (Version 1)
Quarter: 2015Q2

REPORT INFORMATION
  Report Type: Spontaneous
  Country: US (occurrence: US)
  Receive Date: 20150504
  Receipt Date: 20150504
  Transmission Date: 20150821
  Serious: No
  Sender: FDA-Public Use
  Company Number: US-TEVA-558766USA

PATIENT
  Age: 39 Year
  Sex: Female

DRUGS (1)
  1. NUVIGIL [Suspect]
     Active Substance: ARMODAFINIL
     Indication: NARCOLEPSY
     Route: 048
     Dates: start: 201501

REACTIONS (3)
  - Drug ineffective [Unknown]
  - Anxiety [Unknown]
  - Somnolence [Unknown]

NARRATIVE: CASE EVENT DATE: 201504
